FAERS Safety Report 20500505 (Version 1)
Quarter: 2022Q1

REPORT INFORMATION
  Report Type: Other
  Country: PT (occurrence: None)
  Receive Date: 20220222
  Receipt Date: 20220222
  Transmission Date: 20220424
  Serious: Yes (Hospitalization, Congenital Anomaly, Other)
  Sender: FDA-Public Use
  Company Number: PT-ROCHE-3028001

PATIENT
  Sex: Female

DRUGS (2)
  1. OSELTAMIVIR [Suspect]
     Active Substance: OSELTAMIVIR
     Indication: Influenza
     Route: 064
  2. CEFTRIAXONE [Suspect]
     Active Substance: CEFTRIAXONE
     Indication: Infection
     Route: 064

REACTIONS (4)
  - Congenital central hypoventilation syndrome [Unknown]
  - Atrial septal defect [Unknown]
  - Staphylococcal sepsis [Unknown]
  - Foetal exposure during pregnancy [Unknown]
